FAERS Safety Report 9712967 (Version 1)
Quarter: 2013Q4

REPORT INFORMATION
  Report Type: Spontaneous
  Country: US (occurrence: US)
  Receive Date: 20131126
  Receipt Date: 20131126
  Transmission Date: 20140711
  Serious: Yes (Other)
  Sender: FDA-Public Use
  Company Number: US-BRISTOL-MYERS SQUIBB COMPANY-18943746

PATIENT
  Age: 71 Year
  Sex: Female
  Weight: 64.4 kg

DRUGS (3)
  1. BYDUREON [Suspect]
     Indication: TYPE 2 DIABETES MELLITUS
     Dosage: 5TH DOSE-25MAY2013
     Route: 058
  2. CORTISONE [Concomitant]
  3. XYLOCAINE [Concomitant]

REACTIONS (2)
  - Abdominal pain [Unknown]
  - Dizziness [Unknown]
